FAERS Safety Report 16398786 (Version 1)
Quarter: 2019Q3

REPORT INFORMATION
  Report Type: Spontaneous
  Country: US (occurrence: US)
  Receive Date: 20190605
  Receipt Date: 20190605
  Transmission Date: 20191004
  Serious: No
  Sender: FDA-Public Use
  Company Number: None

PATIENT
  Age: 67 Year
  Sex: Female
  Weight: 51.75 kg

DRUGS (1)
  1. RITUXAN [Suspect]
     Active Substance: RITUXIMAB
     Route: 042
     Dates: start: 20190604, end: 20190604

REACTIONS (4)
  - Nausea [None]
  - Vomiting [None]
  - Cold sweat [None]
  - Blood pressure decreased [None]

NARRATIVE: CASE EVENT DATE: 20190604
